FAERS Safety Report 6977936-0 (Version None)
Quarter: 2010Q3

REPORT INFORMATION
  Report Type: 
  Country: None (occurrence: None)
  Receive Date: 20100913
  Receipt Date: 20100831
  Transmission Date: 20110219
  Serious: Yes (Hospitalization, Other)
  Sender: FDA-Public Use
  Company Number: PHHY2010JP36123

PATIENT
  Sex: Male
  Weight: 63 kg

DRUGS (25)
  1. ICL670A ICL+DISTAB [Suspect]
     Indication: MYELODYSPLASTIC SYNDROME
     Dosage: 1000 MG/DAY
     Route: 048
     Dates: start: 20090623, end: 20090713
  2. ICL670A ICL+DISTAB [Suspect]
     Indication: IRON OVERLOAD
     Dosage: 1000 MG/DAY
     Route: 048
     Dates: start: 20090728, end: 20091105
  3. ICL670A ICL+DISTAB [Suspect]
     Dosage: 1000 MG/DAY
     Route: 048
     Dates: start: 20091201, end: 20100105
  4. PRIMOBOLAN [Concomitant]
     Indication: MYELODYSPLASTIC SYNDROME
     Dosage: 60 MG, UNK
     Route: 048
     Dates: start: 20090212, end: 20090810
  5. LASIX [Concomitant]
     Dosage: 40 MG, UNK
     Route: 048
     Dates: start: 20090214
  6. LASIX [Concomitant]
     Dosage: 40 MG, UNK
     Route: 048
     Dates: end: 20100105
  7. PRANLUKAST [Concomitant]
     Dosage: 450 MG, UNK
     Route: 048
  8. PRANLUKAST [Concomitant]
     Dosage: 450 MG, UNK
     Route: 048
     Dates: end: 20100105
  9. FLUTIDE [Concomitant]
     Dosage: 400 UG, UNK
     Dates: end: 20091229
  10. TULOBUTEROL [Concomitant]
     Dosage: 2 MG, UNK
     Route: 062
  11. TULOBUTEROL [Concomitant]
     Dosage: 2 MG, UNK
     Route: 062
     Dates: end: 20100105
  12. SPIRIVA [Concomitant]
     Dosage: 18 UG, UNK
  13. MEPTIN [Concomitant]
     Dosage: 10 UG, UNK
  14. AMPICILLIN SODIUM/SULBACTAM SODIUM [Concomitant]
     Dosage: 3 G, UNK
     Dates: start: 20090714, end: 20090717
  15. CLARITHROMYCIN [Concomitant]
     Dosage: 400 MG, UNK
     Route: 048
     Dates: start: 20090717, end: 20090723
  16. RANITAC [Concomitant]
     Indication: PROPHYLAXIS
     Dosage: 300 MG, UNK
     Route: 048
     Dates: start: 20090812, end: 20090928
  17. MUCOSTA [Concomitant]
     Indication: PROPHYLAXIS
     Dosage: 300 MG, UNK
     Route: 048
     Dates: start: 20091112, end: 20091114
  18. ENSURE [Concomitant]
     Indication: NUTRITIONAL SUPPORT
     Dosage: 500 ML, UNK
     Route: 048
     Dates: start: 20091124
  19. ENSURE [Concomitant]
     Dosage: 500 ML, UNK
     Route: 048
     Dates: end: 20100105
  20. FLUTIDE DISKUS [Concomitant]
     Dosage: 200 UG, UNK
     Dates: start: 20091229, end: 20100105
  21. FRESH FROZEN PLASMA [Concomitant]
     Dosage: 4 U, UNK
     Dates: start: 20091105
  22. RED BLOOD CELLS, LEUCOCYTE DEPLETED [Concomitant]
     Dosage: 2 UNITS EVERY 1 TO 2 WEEKS
     Dates: start: 20090630, end: 20091027
  23. RED BLOOD CELLS, LEUCOCYTE DEPLETED [Concomitant]
     Dosage: 4 U, UNK
     Dates: start: 20091105
  24. RED BLOOD CELLS, LEUCOCYTE DEPLETED [Concomitant]
     Dosage: 2 UNITS EVERY 2 TO 3 WEEKS
     Dates: start: 20091124, end: 20091229
  25. RED BLOOD CELLS, LEUCOCYTE DEPLETED [Concomitant]
     Dosage: 2 UNITS EVERY WEEK
     Dates: start: 20091229, end: 20100105

REACTIONS (15)
  - ABDOMINAL DISCOMFORT [None]
  - BLOOD LACTATE DEHYDROGENASE DECREASED [None]
  - BLOOD LACTATE DEHYDROGENASE INCREASED [None]
  - BRONCHITIS [None]
  - CHOLECYSTITIS ACUTE [None]
  - HEADACHE [None]
  - LYMPHOCYTE COUNT DECREASED [None]
  - MALIGNANT NEOPLASM PROGRESSION [None]
  - NASOPHARYNGITIS [None]
  - NAUSEA [None]
  - PNEUMONIA [None]
  - PYREXIA [None]
  - SERUM FERRITIN INCREASED [None]
  - VOMITING [None]
  - WHITE BLOOD CELL COUNT INCREASED [None]
